FAERS Safety Report 6119165-9 (Version None)
Quarter: 2009Q1

REPORT INFORMATION
  Report Type: 
  Country: None (occurrence: None)
  Receive Date: 20090316
  Receipt Date: 20090303
  Transmission Date: 20090719
  Serious: Yes (Hospitalization)
  Sender: FDA-Public Use
  Company Number: US-ROCHE-489408

PATIENT
  Age: 68 Year
  Sex: Female

DRUGS (2)
  1. BONIVA [Suspect]
     Indication: OSTEOPOROSIS
     Dosage: RECEIVED ONLY ONE DOSE
     Route: 042
     Dates: start: 20070305, end: 20070305
  2. PERCOCET [Concomitant]
     Indication: PAIN

REACTIONS (20)
  - ADVERSE REACTION [None]
  - ARTHRITIS [None]
  - BEDRIDDEN [None]
  - BODY HEIGHT DECREASED [None]
  - BONE PAIN [None]
  - CYSTITIS [None]
  - FALL [None]
  - FIBROMYALGIA [None]
  - HEADACHE [None]
  - HEART RATE IRREGULAR [None]
  - JOINT RANGE OF MOTION DECREASED [None]
  - MEMORY IMPAIRMENT [None]
  - MUSCULAR WEAKNESS [None]
  - MUSCULOSKELETAL PAIN [None]
  - MYALGIA [None]
  - PAIN [None]
  - PAIN IN EXTREMITY [None]
  - PYREXIA [None]
  - URINARY INCONTINENCE [None]
  - VOMITING [None]
